FAERS Safety Report 8833668 (Version 2)
Quarter: 2013Q1

REPORT INFORMATION
  Report Type: Report from Study
  Country: CA (occurrence: CA)
  Receive Date: 20121010
  Receipt Date: 20130305
  Transmission Date: 20140127
  Serious: No
  Sender: FDA-Public Use
  Company Number: CA-UCBSA-068122

PATIENT
  Age: 55 Year
  Sex: Female

DRUGS (7)
  1. CIMZIA [Suspect]
     Indication: RHEUMATOID ARTHRITIS
     Dosage: WAS ON HOLD AND RESTARTED ON 05/SEP/2012
     Route: 058
     Dates: start: 20120725
  2. CIMZIA [Suspect]
     Indication: RHEUMATOID ARTHRITIS
     Route: 058
     Dates: start: 20110728, end: 2012
  3. CIMZIA [Suspect]
     Indication: RHEUMATOID ARTHRITIS
     Route: 058
     Dates: start: 20110601, end: 20110629
  4. IMURAN [Concomitant]
     Indication: RHEUMATOID ARTHRITIS
     Route: 048
  5. CELEBREX [Concomitant]
     Indication: PAIN
     Route: 048
  6. TYLENOL PLAIN [Concomitant]
     Indication: PAIN
     Dosage: 325 MG AS NEEDED
     Route: 048
  7. TYLENOL#3 [Concomitant]
     Indication: PAIN
     Dosage: NIGHTLY AS NEEDED
     Route: 048

REACTIONS (1)
  - Upper respiratory tract infection [Recovered/Resolved]
